FAERS Safety Report 16851431 (Version 2)
Quarter: 2019Q3

REPORT INFORMATION
  Report Type: Spontaneous
  Country: US (occurrence: US)
  Receive Date: 20190925
  Receipt Date: 20190930
  Transmission Date: 20191005
  Serious: No
  Sender: FDA-Public Use
  Company Number: US-PFIZER INC-2019412667

PATIENT
  Age: 59 Year
  Sex: Male

DRUGS (1)
  1. CHANTIX [Suspect]
     Active Substance: VARENICLINE TARTRATE
     Indication: SMOKING CESSATION THERAPY
     Dosage: UNK, 2X/DAY(THE NEWER KIT IN THE MORNING AND WHEN I GO HOME AT NIGHT I TOOK THE OLDER KIT)

REACTIONS (1)
  - Constipation [Unknown]
